FAERS Safety Report 10665812 (Version 1)
Quarter: 2014Q4

REPORT INFORMATION
  Report Type: Spontaneous
  Country: US (occurrence: US)
  Receive Date: 20141219
  Receipt Date: 20141219
  Transmission Date: 20150529
  Serious: Yes (Other)
  Sender: FDA-Public Use
  Company Number: US-SHIRE-US201408888

PATIENT
  Age: 15 Year
  Sex: Female
  Weight: 56.69 kg

DRUGS (5)
  1. LIALDA [Suspect]
     Active Substance: MESALAMINE
     Indication: COLITIS ULCERATIVE
     Dosage: 2.4 G (TWO 1.2 G TABLETS), 1X/DAY:QD, DAILY
     Route: 048
     Dates: start: 20141027
  2. PREDNISONE. [Concomitant]
     Active Substance: PREDNISONE
     Dosage: 10 MG, 2X/DAY:BID
     Route: 048
     Dates: start: 20141106, end: 20141110
  3. PREDNISONE. [Concomitant]
     Active Substance: PREDNISONE
     Dosage: 10 MG, 3X/DAY:TID
     Route: 048
     Dates: start: 20141101, end: 20141105
  4. PREDNISONE. [Concomitant]
     Active Substance: PREDNISONE
     Dosage: 10 MG, 1X/DAY:QD
     Route: 048
     Dates: start: 20141111, end: 20141115
  5. PREDNISONE. [Concomitant]
     Active Substance: PREDNISONE
     Indication: COLITIS ULCERATIVE
     Dosage: 10 MG, 4X/DAY:QID
     Route: 048
     Dates: start: 20141027, end: 20141031

REACTIONS (3)
  - Drug administered to patient of inappropriate age [Not Recovered/Not Resolved]
  - Clostridium difficile infection [Recovering/Resolving]
  - Colitis ulcerative [Recovering/Resolving]

NARRATIVE: CASE EVENT DATE: 20141027
